FAERS Safety Report 10169878 (Version 1)
Quarter: 2014Q2

REPORT INFORMATION
  Report Type: Report from Study
  Country: US (occurrence: US)
  Receive Date: 20140513
  Receipt Date: 20140513
  Transmission Date: 20141212
  Serious: Yes (Hospitalization, Other)
  Sender: FDA-Public Use
  Company Number: US-GILEAD-2014-0101788

PATIENT
  Sex: Female

DRUGS (3)
  1. SOFOSBUVIR [Suspect]
     Indication: CHRONIC HEPATITIS C
     Dosage: 400 UNKNOWN, UNK FOR 3 OR 4 WEEKS
     Route: 065
  2. RIBAVIRIN [Suspect]
     Indication: CHRONIC HEPATITIS C
     Dosage: TAKEN FOR FOR 3 OR 4 WEEKS
  3. PEGASYS [Suspect]
     Indication: CHRONIC HEPATITIS C
     Dosage: TAKEN FOR 3 OR 4 WEEKS

REACTIONS (1)
  - Haemorrhage [Unknown]
